FAERS Safety Report 5314283-7 (Version None)
Quarter: 2007Q2

REPORT INFORMATION
  Report Type: 
  Country: None (occurrence: None)
  Receive Date: 20070425
  Receipt Date: 20070410
  Transmission Date: 20071010
  Serious: Yes (Hospitalization)
  Sender: FDA-Public Use
  Company Number: 2007000267

PATIENT
  Age: 56 Year
  Sex: Male
  Weight: 49.9 kg

DRUGS (10)
  1. ERLOTINIB (TABLET) [Suspect]
     Indication: NON-SMALL CELL LUNG CANCER
     Dosage: 50 MG (QD), ORAL
     Route: 048
     Dates: start: 20061219
  2. BEVACIZUMAB (INJECTION FOR INFUSION) [Suspect]
     Dosage: 1040 MG (DAYS 1 AND 22), INTRAVENOUS
     Route: 042
     Dates: start: 20061219
  3. ISOSORBIDE MONONITRATE [Concomitant]
  4. LIPITOR [Concomitant]
  5. ZETIA [Concomitant]
  6. COREG [Concomitant]
  7. GLIPIZIDE [Concomitant]
  8. ALTACE [Concomitant]
  9. NEXIUM [Concomitant]
  10. ZITHROMAX [Concomitant]

REACTIONS (5)
  - CATHETER SITE HAEMORRHAGE [None]
  - DIZZINESS [None]
  - HAEMATEMESIS [None]
  - HAEMOGLOBIN DECREASED [None]
  - RECTAL HAEMORRHAGE [None]
